FAERS Safety Report 9931283 (Version 3)
Quarter: 2019Q4

REPORT INFORMATION
  Report Type: Report from Study
  Country: JP (occurrence: JP)
  Receive Date: 20140228
  Receipt Date: 20191028
  Transmission Date: 20200122
  Serious: Yes (Death)
  Sender: FDA-Public Use
  Company Number: PHHO2012JP008245

PATIENT

DRUGS (1)
  1. EVEROLIMUS TABLETS AF [Suspect]
     Active Substance: EVEROLIMUS
     Indication: RENAL CANCER METASTATIC
     Dosage: UNK
     Route: 048

REACTIONS (1)
  - Death [Fatal]
